FAERS Safety Report 16573771 (Version 1)
Quarter: 2019Q3

REPORT INFORMATION
  Report Type: Spontaneous
  Country: NZ (occurrence: NZ)
  Receive Date: 20190715
  Receipt Date: 20190715
  Transmission Date: 20191004
  Serious: Yes (Other)
  Sender: FDA-Public Use
  Company Number: NZ-GUERBET-NZ-20190045

PATIENT
  Age: 32 Year
  Sex: Male

DRUGS (1)
  1. DOTAREM [Suspect]
     Active Substance: GADOTERATE MEGLUMINE
     Indication: PRODUCT USED FOR UNKNOWN INDICATION
     Route: 042
     Dates: start: 201902

REACTIONS (4)
  - Respiratory distress [Unknown]
  - Eye irritation [Unknown]
  - Flushing [Unknown]
  - Pruritus [Unknown]
